FAERS Safety Report 10216861 (Version 1)
Quarter: 2014Q2

REPORT INFORMATION
  Report Type: Spontaneous
  Country: GB (occurrence: GB)
  Receive Date: 20140604
  Receipt Date: 20140604
  Transmission Date: 20141212
  Serious: Yes (Other)
  Sender: FDA-Public Use
  Company Number: GB-JNJFOC-20140515648

PATIENT
  Age: 57 Year
  Sex: Male
  Weight: 71 kg

DRUGS (4)
  1. PARACETAMOL [Suspect]
     Route: 065
  2. PARACETAMOL [Suspect]
     Indication: PAIN
     Route: 065
  3. PARACETAMOL [Suspect]
     Indication: PAIN
     Route: 042
  4. LANSOPRAZOLE [Concomitant]
     Indication: PRODUCT USED FOR UNKNOWN INDICATION
     Route: 065

REACTIONS (1)
  - Hyperhidrosis [Recovered/Resolved]
